FAERS Safety Report 4695644-6 (Version None)
Quarter: 2005Q2

REPORT INFORMATION
  Report Type: 
  Country: None (occurrence: None)
  Receive Date: 20050621
  Receipt Date: 20050609
  Transmission Date: 20051028
  Serious: Yes (Hospitalization)
  Sender: FDA-Public Use
  Company Number: PHBS2005IN08213

PATIENT
  Age: 77 Year
  Sex: Male

DRUGS (4)
  1. ANTIBIOTICS [Concomitant]
  2. CEPHALOSPORINES [Concomitant]
  3. ANAESTHESIA [Concomitant]
  4. VOVERAN /IND/ [Suspect]
     Indication: POST PROCEDURAL PAIN
     Dosage: 75 MG, ONCE/SINGLE
     Route: 030

REACTIONS (2)
  - HYPOTENSION [None]
  - RESTLESSNESS [None]
